FAERS Safety Report 23025952 (Version 1)
Quarter: 2023Q4

REPORT INFORMATION
  Report Type: Spontaneous
  Country: US (occurrence: US)
  Receive Date: 20231004
  Receipt Date: 20231004
  Transmission Date: 20240110
  Serious: Yes (Other)
  Sender: FDA-Public Use
  Company Number: US-APOTEX-2023AP014452

PATIENT
  Age: 12 Month

DRUGS (1)
  1. ONDANSETRON [Suspect]
     Active Substance: ONDANSETRON
     Indication: Product used for unknown indication
     Dosage: 6.4 MILLIGRAM/KILOGRAM
     Route: 048

REACTIONS (6)
  - Depressed level of consciousness [Unknown]
  - Seizure [Unknown]
  - Serotonin syndrome [Unknown]
  - Overdose [Unknown]
  - Rash [Unknown]
  - Myoclonus [Unknown]
